FAERS Safety Report 6371808-0 (Version None)
Quarter: 2009Q3

REPORT INFORMATION
  Report Type: 
  Country: None (occurrence: None)
  Receive Date: 20090923
  Receipt Date: 20090911
  Transmission Date: 20100115
  Serious: Yes (Hospitalization)
  Sender: FDA-Public Use
  Company Number: KR-SANOFI-SYNTHELABO-F01200900888

PATIENT
  Sex: Male

DRUGS (10)
  1. MEGACE [Concomitant]
     Dosage: UNK
     Route: 065
     Dates: start: 20090208, end: 20090311
  2. THIAZIDE [Concomitant]
     Dosage: UNK
     Route: 065
     Dates: start: 20090208, end: 20090311
  3. AMLODIPINE [Concomitant]
     Dosage: UNK
     Route: 065
     Dates: start: 20090209, end: 20090311
  4. MAGNESIUM OXIDE [Concomitant]
     Dosage: UNK
     Route: 065
     Dates: start: 20090209, end: 20090311
  5. OXYCONTIN [Concomitant]
     Dosage: UNK
     Route: 065
     Dates: start: 20090209, end: 20090217
  6. LEUCOVORIN CALCIUM [Suspect]
     Dosage: UNK
     Route: 065
     Dates: start: 20090209, end: 20090209
  7. BEVACIZUMAB [Suspect]
     Dosage: 330 MG
     Route: 042
     Dates: start: 20090208, end: 20090208
  8. ULTRACET [Concomitant]
     Dosage: UNK
     Route: 065
     Dates: start: 20090218, end: 20090311
  9. FLUOROURACIL [Suspect]
     Dosage: 1700 MG
     Route: 042
     Dates: start: 20090208, end: 20090209
  10. OXALIPLATIN [Suspect]
     Indication: COLORECTAL CANCER
     Route: 041
     Dates: start: 20090208, end: 20090208

REACTIONS (1)
  - DELIRIUM [None]
